FAERS Safety Report 18226990 (Version 1)
Quarter: 2020Q3

REPORT INFORMATION
  Report Type: Spontaneous
  Country: JP (occurrence: JP)
  Receive Date: 20200903
  Receipt Date: 20200903
  Transmission Date: 20201103
  Serious: Yes (Other)
  Sender: FDA-Public Use
  Company Number: JP-PFIZER INC-2020338103

PATIENT
  Age: 44 Year
  Sex: Female
  Weight: 59.5 kg

DRUGS (5)
  1. INFLIXIMAB PFIZER [Suspect]
     Active Substance: INFLIXIMAB
     Dosage: 320 MG (WEIGHT WAS 64.0 KG)
     Route: 041
     Dates: start: 20191211, end: 20191211
  2. BILASTINE [Suspect]
     Active Substance: BILASTINE
     Indication: ASTHMA
     Dosage: UNK
     Dates: start: 20191016
  3. FORMOTEROL FUMARATE HYDRATE [Suspect]
     Active Substance: FORMOTEROL FUMARATE
     Indication: ASTHMA
     Dosage: UNK
     Dates: start: 20191016
  4. MONTELUKAST SODIUM. [Suspect]
     Active Substance: MONTELUKAST SODIUM
     Indication: ASTHMA
     Dosage: UNK
     Dates: start: 20191016
  5. INFLIXIMAB PFIZER [Suspect]
     Active Substance: INFLIXIMAB
     Indication: CROHN^S DISEASE
     Dosage: 295 MG (WEIGHT WAS 59.0 KG)
     Route: 041
     Dates: start: 20181217, end: 20181217

REACTIONS (1)
  - Genital haemorrhage [Unknown]

NARRATIVE: CASE EVENT DATE: 20191016
